FAERS Safety Report 5366865-4 (Version None)
Quarter: 2007Q2

REPORT INFORMATION
  Report Type: 
  Country: None (occurrence: None)
  Receive Date: 20070622
  Receipt Date: 20061019
  Transmission Date: 20071010
  Serious: No
  Sender: FDA-Public Use
  Company Number: US-ASTRAZENECA-2006UW20192

PATIENT
  Age: 82 Year
  Sex: Male
  Weight: 79.8 kg

DRUGS (3)
  1. RHINOCORT [Suspect]
     Indication: NASAL CONGESTION
     Route: 045
  2. FLOMAX [Concomitant]
  3. PHENYTOIN [Concomitant]

REACTIONS (1)
  - FATIGUE [None]
